FAERS Safety Report 9468879 (Version 2)
Quarter: 2013Q3

REPORT INFORMATION
  Report Type: Spontaneous
  Country: US (occurrence: US)
  Receive Date: 20130821
  Receipt Date: 20130821
  Transmission Date: 20140515
  Serious: Yes (Other)
  Sender: FDA-Public Use
  Company Number: US-BAYER-2013-099899

PATIENT
  Age: 59 Year
  Sex: Female
  Weight: 70 kg

DRUGS (1)
  1. RID SHAMPOO [Suspect]
     Dosage: UNK DOSE,UNK
     Route: 031

REACTIONS (6)
  - Vision blurred [Not Recovered/Not Resolved]
  - Eye irritation [Recovered/Resolved]
  - Accidental exposure to product [None]
  - Eye discharge [Not Recovered/Not Resolved]
  - Ocular hyperaemia [Not Recovered/Not Resolved]
  - Eye irritation [Not Recovered/Not Resolved]
